FAERS Safety Report 6239216-0 (Version None)
Quarter: 2009Q2

REPORT INFORMATION
  Report Type: 
  Country: None (occurrence: None)
  Receive Date: 20090617
  Receipt Date: 20080303
  Transmission Date: 20091009
  Serious: No
  Sender: FDA-Public Use
  Company Number: 272840

PATIENT
  Age: 62 Year
  Sex: Female

DRUGS (1)
  1. LEVEMIR [Suspect]
     Indication: INSULIN-REQUIRING TYPE 2 DIABETES MELLITUS
     Dosage: SUBCUTANEOUS
     Route: 058
     Dates: start: 20070801

REACTIONS (1)
  - INJECTION SITE HAEMATOMA [None]
